FAERS Safety Report 9513031 (Version 1)
Quarter: 2013Q3

REPORT INFORMATION
  Report Type: Spontaneous
  Country: US (occurrence: US)
  Receive Date: 20130910
  Receipt Date: 20130910
  Transmission Date: 20140515
  Serious: No
  Sender: FDA-Public Use
  Company Number: US-PFIZER INC-2013255768

PATIENT
  Age: 57 Year
  Sex: Female
  Weight: 129 kg

DRUGS (13)
  1. SUTENT [Suspect]
     Dosage: UNK
  2. AFINITOR [Suspect]
     Dosage: UNK
  3. TEMODAR [Suspect]
     Dosage: UNK
  4. SANDOSTATIN [Suspect]
     Dosage: UNK
  5. LEVOTHROID [Concomitant]
     Dosage: UNK
  6. ACIPHEX [Concomitant]
     Dosage: UNK
  7. LASIX [Concomitant]
     Dosage: UNK
  8. SERTRALINE [Concomitant]
     Dosage: UNK
  9. LOSARTAN [Concomitant]
     Dosage: UNK
  10. LYRICA [Concomitant]
     Dosage: UNK
  11. CITRACAL + D [Concomitant]
     Dosage: UNK
  12. FENOFIBRATE [Concomitant]
     Dosage: UNK
  13. BAYER CHILDREN^S ASPIRIN [Concomitant]
     Dosage: UNK

REACTIONS (4)
  - Rash [Unknown]
  - Alopecia [Unknown]
  - Weight decreased [Unknown]
  - Rash pruritic [Unknown]
